FAERS Safety Report 8179058-2 (Version None)
Quarter: 2012Q1

REPORT INFORMATION
  Report Type: 
  Country: None (occurrence: None)
  Receive Date: 20120302
  Receipt Date: 20120220
  Transmission Date: 20120608
  Serious: Yes (Disabling, Other)
  Sender: FDA-Public Use
  Company Number: JP-ROCHE-745788

PATIENT
  Sex: Female
  Weight: 46 kg

DRUGS (15)
  1. FLUOROURACIL [Suspect]
     Dosage: ROUTE: INTRAVENOUS DRIP
     Route: 040
     Dates: start: 20100728, end: 20101109
  2. OXYCONTIN [Concomitant]
     Indication: CANCER PAIN
     Route: 048
  3. LOXONIN [Concomitant]
     Indication: CANCER PAIN
     Route: 048
  4. FLUOROURACIL [Suspect]
     Indication: COLON CANCER METASTATIC
     Dosage: ROUTE: INTRAVENOUS BOLUS
     Route: 040
     Dates: start: 20100728, end: 20101109
  5. FLUOROURACIL [Suspect]
     Route: 041
     Dates: start: 20100728, end: 20111101
  6. LEVOLEUCOVORIN CALCIUM [Concomitant]
     Indication: COLON CANCER METASTATIC
     Route: 041
     Dates: start: 20100728, end: 20101109
  7. RABEPRAZOLE SODIUM [Concomitant]
     Indication: PROPHYLAXIS AGAINST GASTROINTESTINAL ULCER
     Route: 048
  8. IRINOTECAN HCL [Suspect]
     Indication: COLON CANCER METASTATIC
     Route: 041
     Dates: start: 20100728, end: 20101109
  9. ATROPINE [Concomitant]
     Indication: PROPHYLAXIS AGAINST DIARRHOEA
     Route: 041
     Dates: start: 20100817, end: 20101109
  10. DECADRON [Concomitant]
     Indication: PROPHYLAXIS OF NAUSEA AND VOMITING
     Route: 041
     Dates: start: 20100728, end: 20101109
  11. ORGOTEIN [Concomitant]
     Route: 048
  12. ALOXI [Concomitant]
     Indication: PROPHYLAXIS OF NAUSEA AND VOMITING
     Route: 041
     Dates: start: 20100728, end: 20101109
  13. AVASTIN [Suspect]
     Indication: COLON CANCER METASTATIC
     Route: 041
     Dates: start: 20101019, end: 20101109
  14. DECADRON [Concomitant]
     Route: 048
     Dates: start: 20100729, end: 20101112
  15. METHYCOBAL [Concomitant]
     Indication: NEUROPATHY PERIPHERAL
     Route: 048

REACTIONS (8)
  - PYREXIA [None]
  - LARGE INTESTINE PERFORATION [None]
  - HAEMORRHOIDAL HAEMORRHAGE [None]
  - MALAISE [None]
  - INFECTIOUS PERITONITIS [None]
  - HEADACHE [None]
  - DIZZINESS [None]
  - TUMOUR LYSIS SYNDROME [None]
